FAERS Safety Report 15775488 (Version 1)
Quarter: 2018Q4

REPORT INFORMATION
  Report Type: Spontaneous
  Country: US (occurrence: US)
  Receive Date: 20181231
  Receipt Date: 20181231
  Transmission Date: 20190205
  Serious: No
  Sender: FDA-Public Use
  Company Number: US-DRREDDYS-USA/USA/17/0095260

PATIENT
  Age: 55 Year
  Sex: Male
  Weight: 61.2 kg

DRUGS (1)
  1. NICOTINE. [Suspect]
     Active Substance: NICOTINE
     Indication: SMOKING CESSATION THERAPY
     Route: 065
     Dates: start: 201711

REACTIONS (4)
  - Nightmare [Recovered/Resolved]
  - Sleep disorder [Unknown]
  - Drug effect increased [Unknown]
  - Incorrect product administration duration [Unknown]
